FAERS Safety Report 13510711 (Version 2)
Quarter: 2017Q2

REPORT INFORMATION
  Report Type: Spontaneous
  Country: DE (occurrence: DE)
  Receive Date: 20170503
  Receipt Date: 20170508
  Transmission Date: 20170830
  Serious: Yes (Other)
  Sender: FDA-Public Use
  Company Number: PHHY2017DE062589

PATIENT
  Sex: Female

DRUGS (1)
  1. TAFINLAR [Suspect]
     Active Substance: DABRAFENIB MESYLATE
     Indication: PRODUCT USED FOR UNKNOWN INDICATION
     Dosage: UNK
     Route: 065
     Dates: start: 20170424

REACTIONS (3)
  - Dermatitis exfoliative [Unknown]
  - Drug reaction with eosinophilia and systemic symptoms [Unknown]
  - Rash generalised [Unknown]

NARRATIVE: CASE EVENT DATE: 20170424
